FAERS Safety Report 10935455 (Version 2)
Quarter: 2015Q2

REPORT INFORMATION
  Report Type: Spontaneous
  Country: US (occurrence: US)
  Receive Date: 20150320
  Receipt Date: 20150520
  Transmission Date: 20150821
  Serious: Yes (Other)
  Sender: FDA-Public Use
  Company Number: US-GLAXOSMITHKLINE-US2015GSK036792

PATIENT
  Age: 53 Year
  Sex: Female

DRUGS (1)
  1. REQUIP [Suspect]
     Active Substance: ROPINIROLE HYDROCHLORIDE
     Indication: RESTLESS LEGS SYNDROME
     Dosage: 0.5 MG, U
     Route: 065

REACTIONS (3)
  - Transient ischaemic attack [Unknown]
  - Gastric operation [Unknown]
  - Dysphagia [Unknown]

NARRATIVE: CASE EVENT DATE: 20150114
